FAERS Safety Report 10112272 (Version 1)
Quarter: 2014Q2

REPORT INFORMATION
  Report Type: Spontaneous
  Country: US (occurrence: US)
  Receive Date: 20140425
  Receipt Date: 20140425
  Transmission Date: 20141212
  Serious: Yes (Other)
  Sender: FDA-Public Use
  Company Number: US-FDA PROD-US14001338

PATIENT
  Age: 14 Year
  Sex: Male

DRUGS (2)
  1. MIRVASO (BRIMONIDINE) TOPICAL GEL, 0.33% [Suspect]
     Indication: ROSACEA
     Route: 061
  2. MIRVASO (BRIMONIDINE) TOPICAL GEL, 0.33% [Suspect]
     Route: 061

REACTIONS (6)
  - Lethargy [Unknown]
  - Bradycardia [Unknown]
  - Hypotension [Unknown]
  - Rebound effect [Unknown]
  - Drug ineffective [Unknown]
  - Off label use [Recovered/Resolved]
